FAERS Safety Report 17771179 (Version 1)
Quarter: 2020Q2

REPORT INFORMATION
  Report Type: Spontaneous
  Country: US (occurrence: US)
  Receive Date: 20200512
  Receipt Date: 20200512
  Transmission Date: 20200714
  Serious: No
  Sender: FDA-Public Use
  Company Number: US-PERRIGO-19US009238

PATIENT
  Age: 36 Year
  Sex: Female

DRUGS (2)
  1. PERMETHRIN. [Suspect]
     Active Substance: PERMETHRIN
     Indication: LICE INFESTATION
     Dosage: 300 MG, IN 10 DAYS
     Route: 061
     Dates: start: 201907, end: 2019
  2. PERMETHRIN. [Suspect]
     Active Substance: PERMETHRIN
     Indication: ECZEMA
     Dosage: UNKNOWN
     Route: 061
     Dates: start: 20180727

REACTIONS (2)
  - Overdose [Unknown]
  - Off label use [Not Recovered/Not Resolved]

NARRATIVE: CASE EVENT DATE: 20180727
